FAERS Safety Report 16109114 (Version 1)
Quarter: 2019Q1

REPORT INFORMATION
  Report Type: Spontaneous
  Country: US (occurrence: US)
  Receive Date: 20190323
  Receipt Date: 20190323
  Transmission Date: 20190418
  Serious: No
  Sender: FDA-Public Use
  Company Number: US-THERAPEUTICSMD-2019TMD00110

PATIENT
  Age: 56 Year
  Sex: Female
  Weight: 51.7 kg

DRUGS (6)
  1. IMVEXXY [Suspect]
     Active Substance: ESTRADIOL
     Dosage: 10 ?G, ONCE
     Route: 048
     Dates: start: 20190204, end: 20190204
  2. IMVEXXY [Suspect]
     Active Substance: ESTRADIOL
     Indication: ATROPHIC VULVOVAGINITIS
     Dosage: 10 ?G, 2X/WEEK
     Route: 067
     Dates: start: 2018
  3. MULTIVITAMIN [Concomitant]
     Active Substance: VITAMINS
  4. CYMBALTA [Concomitant]
     Active Substance: DULOXETINE HYDROCHLORIDE
  5. MACRODANTIN [Concomitant]
     Active Substance: NITROFURANTOIN
     Dosage: UNK, AS NEEDED (POST-COITAL)
  6. PROBIOTIC [Concomitant]
     Active Substance: PROBIOTICS NOS

REACTIONS (5)
  - Off label use [Not Recovered/Not Resolved]
  - Nausea [Recovered/Resolved]
  - Temperature intolerance [Recovered/Resolved]
  - Feeling hot [Recovered/Resolved]
  - Incorrect route of product administration [Recovered/Resolved]

NARRATIVE: CASE EVENT DATE: 2018
